FAERS Safety Report 8987177 (Version 1)
Quarter: 2012Q4

REPORT INFORMATION
  Report Type: 
  Country: US (occurrence: US)
  Receive Date: 20121227
  Receipt Date: 20121227
  Transmission Date: 20130627
  Serious: No
  Sender: FDA-Public Use
  Company Number: US-009507513-1212USA007923

PATIENT
  Sex: Male

DRUGS (6)
  1. DULERA [Suspect]
     Indication: CHRONIC OBSTRUCTIVE PULMONARY DISEASE
     Dosage: 2 DF, bid
     Route: 055
     Dates: start: 20121023, end: 20121218
  2. NORVASC [Concomitant]
  3. LISINOPRIL [Concomitant]
  4. ALBUTEROL [Concomitant]
  5. IPRATROPIUM BROMIDE [Concomitant]
  6. SINGULAIR [Concomitant]
     Route: 048

REACTIONS (3)
  - Nasal congestion [Unknown]
  - Cough [Unknown]
  - Middle insomnia [Unknown]
